FAERS Safety Report 14362584 (Version 2)
Quarter: 2018Q4

REPORT INFORMATION
  Report Type: Spontaneous
  Country: US (occurrence: US)
  Receive Date: 20180108
  Receipt Date: 20181115
  Transmission Date: 20190204
  Serious: Yes (Life-Threatening, Hospitalization, Other)
  Sender: FDA-Public Use
  Company Number: US-VALIDUS PHARMACEUTICALS LLC-US-2018VAL000031

PATIENT
  Age: 6 Year
  Sex: Female

DRUGS (10)
  1. FUROSEMIDE. [Suspect]
     Active Substance: FUROSEMIDE
     Indication: VENTRICULAR DYSFUNCTION
     Dosage: UNK (SOLUTION FOR INJECTION)
     Route: 065
  2. FUROSEMIDE. [Suspect]
     Active Substance: FUROSEMIDE
     Dosage: UNK, INTRAVENOUS INFUSION
     Route: 042
  3. MILRINONE [Suspect]
     Active Substance: MILRINONE
     Indication: VENTRICULAR DYSFUNCTION
     Dosage: UNK
     Route: 065
  4. DAUNORUBICIN [Suspect]
     Active Substance: DAUNORUBICIN
     Indication: ACUTE MYELOID LEUKAEMIA
     Dosage: 4 CYCLICAL
     Route: 065
     Dates: start: 201312, end: 201404
  5. IMMUNOGLOBULIN HUMAN NORMAL [Concomitant]
     Active Substance: HUMAN IMMUNOGLOBULIN G
     Indication: PRODUCT USED FOR UNKNOWN INDICATION
     Dosage: UNK
     Dates: start: 2014
  6. CYTARABINE. [Concomitant]
     Active Substance: CYTARABINE
     Indication: PRODUCT USED FOR UNKNOWN INDICATION
     Dosage: UNK
     Dates: start: 201312, end: 201404
  7. ENALAPRIL MALEATE. [Suspect]
     Active Substance: ENALAPRIL MALEATE
     Indication: VENTRICULAR DYSFUNCTION
     Dosage: UNK
     Route: 048
  8. DOXORUBICIN [Suspect]
     Active Substance: DOXORUBICIN
     Indication: ACUTE MYELOID LEUKAEMIA
     Dosage: 4 CYCLICAL
     Route: 065
     Dates: start: 201312, end: 201404
  9. MITOXANTRONE [Suspect]
     Active Substance: MITOXANTRONE HYDROCHLORIDE
     Indication: ACUTE MYELOID LEUKAEMIA
     Dosage: 4 CYCLICAL
     Route: 065
     Dates: start: 201312, end: 201404
  10. ETOPOSIDE. [Concomitant]
     Active Substance: ETOPOSIDE
     Indication: PRODUCT USED FOR UNKNOWN INDICATION
     Dosage: UNK
     Dates: start: 201312, end: 201404

REACTIONS (12)
  - Cardiomyopathy [Recovered/Resolved]
  - Transaminases increased [Recovered/Resolved]
  - Ventricular dysfunction [Recovered/Resolved]
  - Drug ineffective [Unknown]
  - Ejection fraction decreased [Recovered/Resolved]
  - Dyspnoea [Recovered/Resolved]
  - Cardiotoxicity [Recovered/Resolved]
  - Cardiac failure [Recovered/Resolved]
  - Hypoperfusion [Recovered/Resolved]
  - Urine output decreased [Recovered/Resolved]
  - Hepatic function abnormal [Recovered/Resolved]
  - Respiratory failure [Recovered/Resolved]

NARRATIVE: CASE EVENT DATE: 2014
